FAERS Safety Report 15517612 (Version 1)
Quarter: 2018Q4

REPORT INFORMATION
  Report Type: Spontaneous
  Country: US (occurrence: US)
  Receive Date: 20181018
  Receipt Date: 20181018
  Transmission Date: 20190205
  Serious: Yes (Life-Threatening)
  Sender: FDA-Public Use
  Company Number: None

PATIENT
  Age: 46 Year
  Sex: Female
  Weight: 96.75 kg

DRUGS (13)
  1. HYDROCHLOROTHYAZIDE [Concomitant]
     Active Substance: HYDROCHLOROTHIAZIDE
  2. QVAR [Concomitant]
     Active Substance: BECLOMETHASONE DIPROPIONATE
  3. AEROSOL [Concomitant]
  4. HEMP SEED OIL [Concomitant]
  5. ALBUTEROL. [Concomitant]
     Active Substance: ALBUTEROL
  6. WELLBUTRIN [Concomitant]
     Active Substance: BUPROPION HYDROCHLORIDE
  7. TURMERIC [Concomitant]
     Active Substance: HERBALS\TURMERIC
  8. INJECTION OMALIZUMAB 5 MG [Suspect]
     Active Substance: OMALIZUMAB
     Indication: ASTHMA
     Dosage: ?          QUANTITY:2 INJECTION(S);OTHER FREQUENCY:BIWEEKLY;?
     Route: 058
     Dates: start: 20180924, end: 20181016
  9. PANTOPRAZOL [Concomitant]
     Active Substance: PANTOPRAZOLE SODIUM
  10. SYMBICORT [Concomitant]
     Active Substance: BUDESONIDE\FORMOTEROL FUMARATE DIHYDRATE
  11. MONTELUCAST [Concomitant]
     Active Substance: MONTELUKAST SODIUM
  12. VITAMIN C [Concomitant]
     Active Substance: ASCORBIC ACID
  13. LISINOPRIL. [Concomitant]
     Active Substance: LISINOPRIL

REACTIONS (13)
  - Feeling hot [None]
  - Continuous positive airway pressure [None]
  - Hyperhidrosis [None]
  - Mental impairment [None]
  - Fatigue [None]
  - Musculoskeletal stiffness [None]
  - Cough [None]
  - Headache [None]
  - Nausea [None]
  - Therapy cessation [None]
  - Dysphonia [None]
  - Myalgia [None]
  - Heart rate increased [None]

NARRATIVE: CASE EVENT DATE: 20181008
